FAERS Safety Report 6414056-8 (Version None)
Quarter: 2009Q4

REPORT INFORMATION
  Report Type: 
  Country: None (occurrence: None)
  Receive Date: 20091022
  Receipt Date: 20091022
  Transmission Date: 20100525
  Serious: No
  Sender: FDA-Public Use
  Company Number: None

PATIENT
  Age: 60 Year
  Sex: Male

DRUGS (1)
  1. HEPARIN SODIUM [Suspect]
     Indication: STENT PLACEMENT
     Dosage: 10,500 UNITS IV BOLUS
     Route: 040
     Dates: start: 20091014, end: 20091014

REACTIONS (1)
  - COAGULATION TIME SHORTENED [None]
